FAERS Safety Report 17712855 (Version 1)
Quarter: 2020Q2

REPORT INFORMATION
  Report Type: Spontaneous
  Country: US (occurrence: US)
  Receive Date: 20200427
  Receipt Date: 20200427
  Transmission Date: 20200714
  Serious: Yes (Hospitalization)
  Sender: FDA-Public Use
  Company Number: US-OTSUKA-2020_010411

PATIENT
  Age: 38 Year
  Sex: Male

DRUGS (4)
  1. GEODON [Interacting]
     Active Substance: ZIPRASIDONE HYDROCHLORIDE\ZIPRASIDONE MESYLATE
     Indication: PRODUCT USED FOR UNKNOWN INDICATION
     Dosage: UNK
     Route: 065
     Dates: start: 201911, end: 202003
  2. LITHIUM. [Interacting]
     Active Substance: LITHIUM
     Indication: PRODUCT USED FOR UNKNOWN INDICATION
     Dosage: THREE 900 MG, QD
     Route: 065
     Dates: start: 2017
  3. ABILIFY [Suspect]
     Active Substance: ARIPIPRAZOLE
     Indication: PRODUCT USED FOR UNKNOWN INDICATION
     Dosage: POSSIBLY 20 MG, 40 MG AT THE MOST, QD
     Route: 048
     Dates: start: 2017, end: 201911
  4. ABILIFY MAINTENA [Suspect]
     Active Substance: ARIPIPRAZOLE
     Indication: PRODUCT USED FOR UNKNOWN INDICATION
     Dosage: UNK
     Route: 065
     Dates: start: 202003

REACTIONS (8)
  - Mania [Recovered/Resolved]
  - Treatment noncompliance [Unknown]
  - Compulsive shopping [Unknown]
  - Insurance issue [Unknown]
  - Stress [Unknown]
  - Gambling disorder [Unknown]
  - Drug interaction [Unknown]
  - Weight decreased [Unknown]

NARRATIVE: CASE EVENT DATE: 202003
